FAERS Safety Report 8334843-9 (Version None)
Quarter: 2012Q2

REPORT INFORMATION
  Report Type: 
  Country: None (occurrence: None)
  Receive Date: 20120503
  Receipt Date: 20120423
  Transmission Date: 20120825
  Serious: Yes (Other)
  Sender: FDA-Public Use
  Company Number: JP-BAYER-2012-039555

PATIENT
  Age: 39 Year
  Sex: Female

DRUGS (6)
  1. OLOPATADINE HCL [Concomitant]
     Indication: SEASONAL ALLERGY
     Dosage: UNK
     Route: 048
     Dates: start: 20120201
  2. LITIOMAL [Concomitant]
     Route: 048
  3. CLONAZEPAM [Concomitant]
     Route: 048
  4. GOODMIN [Concomitant]
     Route: 048
  5. YAZ [Suspect]
     Indication: DYSMENORRHOEA
     Dosage: 1 DF, QD
     Route: 048
     Dates: start: 20111001, end: 20120401
  6. ETICALM [Concomitant]
     Route: 048

REACTIONS (2)
  - AGGRESSION [None]
  - SUICIDE ATTEMPT [None]
